FAERS Safety Report 4289163-9 (Version None)
Quarter: 2004Q1

REPORT INFORMATION
  Report Type: 
  Country: None (occurrence: None)
  Receive Date: 20040206
  Receipt Date: 20040127
  Transmission Date: 20041129
  Serious: Yes (Other)
  Sender: FDA-Public Use
  Company Number: US-SHR-03-018444

PATIENT
  Age: 16 Year
  Sex: Female

DRUGS (1)
  1. YASMIN [Suspect]
     Indication: ACNE
     Dosage: 1 TAB, 1X/DAY, ORAL
     Route: 048
     Dates: start: 20030701, end: 20031201

REACTIONS (7)
  - ABDOMINAL PAIN [None]
  - BACK PAIN [None]
  - BREAST NEOPLASM [None]
  - MENOMETRORRHAGIA [None]
  - MENSTRUATION IRREGULAR [None]
  - OVARIAN CYST [None]
  - OVARIAN CYST RUPTURED [None]
